FAERS Safety Report 6165833-2 (Version None)
Quarter: 2009Q2

REPORT INFORMATION
  Report Type: 
  Country: None (occurrence: None)
  Receive Date: 20090422
  Receipt Date: 20090407
  Transmission Date: 20091009
  Serious: Yes (Disabling)
  Sender: FDA-Public Use
  Company Number: 2009S1006115

PATIENT
  Sex: Male

DRUGS (3)
  1. METHOTREXATE [Suspect]
     Dosage: INTRATHECAL
     Route: 037
     Dates: start: 20090301
  2. CYTARABINE [Suspect]
     Dosage: INTRATHECAL
     Route: 037
  3. DEPO-MEDROL [Suspect]
     Dosage: INTRATHECAL
     Route: 037

REACTIONS (2)
  - MYELITIS [None]
  - PARAPLEGIA [None]
